FAERS Safety Report 17641219 (Version 3)
Quarter: 2020Q2

REPORT INFORMATION
  Report Type: Spontaneous
  Country: CN (occurrence: CN)
  Receive Date: 20200407
  Receipt Date: 20200505
  Transmission Date: 20200713
  Serious: Yes (Other)
  Sender: FDA-Public Use
  Company Number: CN-PFIZER INC-2020140146

PATIENT
  Age: 25 Year
  Sex: Male
  Weight: 62 kg

DRUGS (6)
  1. VALPROATE [Interacting]
     Active Substance: VALPROIC ACID
     Indication: EPILEPSY
     Dosage: 1 G, DAILY
     Route: 048
     Dates: start: 20160310
  2. AMBROXOL [Concomitant]
     Active Substance: AMBROXOL
     Indication: PRODUCTIVE COUGH
     Dosage: 30 MG, 4X/DAY (30 MG/6H)
     Route: 041
     Dates: start: 20160310
  3. MEROPENEM. [Suspect]
     Active Substance: MEROPENEM
     Indication: ANTIBIOTIC THERAPY
     Dosage: 1 G, 4X/DAY (1G Q6H)
     Route: 041
     Dates: start: 20160713, end: 20160718
  4. PIPERACILLIN SODIUM/TAZOBACTAM [Concomitant]
     Active Substance: PIPERACILLIN SODIUM\TAZOBACTAM SODIUM
     Indication: ANTI-INFECTIVE THERAPY
     Dosage: 4.5 G, 3X/DAY
     Route: 042
     Dates: start: 20160310, end: 20160320
  5. LEVOFLOXACIN. [Concomitant]
     Active Substance: LEVOFLOXACIN
     Indication: ANTI-INFECTIVE THERAPY
     Dosage: 0.4 G, 1X/DAY
     Route: 041
  6. BUDESONIDE. [Concomitant]
     Active Substance: BUDESONIDE
     Indication: WHEEZING
     Dosage: 1 MG, 4X/DAY (1MG/6H VIA OXYGEN ATOMIZATION)
     Route: 055
     Dates: start: 20160310

REACTIONS (3)
  - Epilepsy [Recovering/Resolving]
  - Anticonvulsant drug level decreased [Recovered/Resolved]
  - Drug interaction [Recovering/Resolving]

NARRATIVE: CASE EVENT DATE: 201607
